FAERS Safety Report 5391754-9 (Version None)
Quarter: 2007Q3

REPORT INFORMATION
  Report Type: 
  Country: None (occurrence: None)
  Receive Date: 20070719
  Receipt Date: 20070713
  Transmission Date: 20080115
  Serious: Yes (Hospitalization)
  Sender: FDA-Public Use
  Company Number: GB-GENENTECH-243533

PATIENT
  Sex: Female
  Weight: 87.5 kg

DRUGS (8)
  1. XOLAIR [Suspect]
     Indication: ASTHMA
     Dosage: 300 MG, UNK
     Route: 058
     Dates: start: 20070518
  2. XOLAIR [Suspect]
     Dosage: 300 MG, UNK
     Route: 058
     Dates: start: 20070614
  3. PREDNISOLONE [Concomitant]
     Indication: DRUG USE FOR UNKNOWN INDICATION
  4. THEOPHYLLINE [Concomitant]
     Indication: DRUG USE FOR UNKNOWN INDICATION
  5. SINGULAIR [Concomitant]
     Indication: DRUG USE FOR UNKNOWN INDICATION
  6. SEREVENT [Concomitant]
     Indication: DRUG USE FOR UNKNOWN INDICATION
  7. SPIRIVA [Concomitant]
     Indication: DRUG USE FOR UNKNOWN INDICATION
  8. FLIXOTIDE [Concomitant]
     Indication: DRUG USE FOR UNKNOWN INDICATION

REACTIONS (3)
  - ASTHMA [None]
  - RASH MACULAR [None]
  - WHEEZING [None]
